FAERS Safety Report 8617832-6 (Version None)
Quarter: 2012Q3

REPORT INFORMATION
  Report Type: 
  Country: None (occurrence: None)
  Receive Date: 20120824
  Receipt Date: 20120213
  Transmission Date: 20120928
  Serious: No
  Sender: FDA-Public Use
  Company Number: US-ASTRAZENECA-2012SE10247

PATIENT
  Age: 63 Year
  Sex: Male

DRUGS (1)
  1. SYMBICORT [Suspect]
     Route: 055

REACTIONS (5)
  - EMPHYSEMA [None]
  - POST-TRAUMATIC STRESS DISORDER [None]
  - PANIC ATTACK [None]
  - GAIT DISTURBANCE [None]
  - CARDIAC DISORDER [None]
